FAERS Safety Report 17429981 (Version 1)
Quarter: 2020Q1

REPORT INFORMATION
  Report Type: Spontaneous
  Country: US (occurrence: US)
  Receive Date: 20200218
  Receipt Date: 20200218
  Transmission Date: 20200409
  Serious: No
  Sender: FDA-Public Use
  Company Number: US-PFIZER INC-2019345698

PATIENT
  Age: 62 Year
  Sex: Male
  Weight: 77.98 kg

DRUGS (1)
  1. LYRICA [Suspect]
     Active Substance: PREGABALIN
     Indication: ABDOMINAL PAIN
     Dosage: 200 MG, 3X/DAY
     Route: 048
     Dates: start: 20190730

REACTIONS (3)
  - Somnolence [Unknown]
  - Off label use [Unknown]
  - Product use in unapproved indication [Unknown]
